FAERS Safety Report 15900821 (Version 2)
Quarter: 2019Q1

REPORT INFORMATION
  Report Type: Report from Study
  Country: ES (occurrence: ES)
  Receive Date: 20190201
  Receipt Date: 20190215
  Transmission Date: 20190417
  Serious: Yes (Hospitalization)
  Sender: FDA-Public Use
  Company Number: ES-ACCORD-104891

PATIENT
  Age: 91 Year
  Sex: Male

DRUGS (11)
  1. BISOPROLOL [Concomitant]
     Active Substance: BISOPROLOL
  2. HIDROFEROL [Concomitant]
     Active Substance: CALCIFEDIOL
  3. ALLOPURINOL. [Suspect]
     Active Substance: ALLOPURINOL
     Indication: PRODUCT USED FOR UNKNOWN INDICATION
     Route: 048
     Dates: start: 2017
  4. ALDOCUMAR [Interacting]
     Active Substance: WARFARIN SODIUM
     Indication: ATRIAL FIBRILLATION
     Dosage: ACCORDING TO INR
     Route: 048
     Dates: start: 2017, end: 20170915
  5. SPIRIVA [Concomitant]
     Active Substance: TIOTROPIUM BROMIDE MONOHYDRATE
  6. SIMVASTATIN. [Concomitant]
     Active Substance: SIMVASTATIN
  7. SEGURIL [Concomitant]
     Active Substance: FUROSEMIDE
  8. OMNIC [Concomitant]
     Active Substance: TAMSULOSIN HYDROCHLORIDE
  9. RELVAR ELLIPTA [Concomitant]
     Active Substance: FLUTICASONE FUROATE\VILANTEROL TRIFENATATE
  10. PANTOPRAZOLE [Concomitant]
     Active Substance: PANTOPRAZOLE
  11. MIXTARD HUMAN 70/30 [Concomitant]
     Active Substance: INSULIN HUMAN

REACTIONS (2)
  - Haematuria [Recovering/Resolving]
  - Drug interaction [Unknown]

NARRATIVE: CASE EVENT DATE: 20170914
